FAERS Safety Report 9717625 (Version 1)
Quarter: 2013Q4

REPORT INFORMATION
  Report Type: Spontaneous
  Country: DE (occurrence: DE)
  Receive Date: 20131127
  Receipt Date: 20131127
  Transmission Date: 20140711
  Serious: Yes (Other)
  Sender: FDA-Public Use
  Company Number: DE-PFIZER INC-2013335348

PATIENT
  Age: 30 Year
  Sex: Female

DRUGS (7)
  1. ZIPRASIDONE HCL [Suspect]
     Dosage: 20 MG, 1X/DAY
     Route: 048
     Dates: start: 20120301, end: 20130331
  2. ZIPRASIDONE HCL [Suspect]
     Dosage: 40 MG, 1X/DAY
     Route: 048
     Dates: start: 20130401, end: 20130403
  3. ZIPRASIDONE HCL [Suspect]
     Dosage: 60 MG, 1X/DAY
     Route: 048
     Dates: start: 20130404, end: 20130410
  4. ZIPRASIDONE HCL [Suspect]
     Dosage: 40 MG, 1X/DAY
     Route: 048
     Dates: start: 20130411, end: 20130414
  5. ESCITALOPRAM [Concomitant]
     Dosage: 30 MG, 1X/DAY
     Route: 048
     Dates: start: 20130327, end: 20130422
  6. ESCITALOPRAM [Concomitant]
     Dosage: 40 MG, 1X/DAY
     Route: 048
     Dates: start: 20130423
  7. L-THYROXIN [Concomitant]
     Dosage: 50 UG, 1X/DAY
     Route: 048
     Dates: start: 20130320

REACTIONS (2)
  - Oedema peripheral [Recovered/Resolved]
  - Pain in extremity [Recovered/Resolved]
